FAERS Safety Report 16676704 (Version 1)
Quarter: 2019Q3

REPORT INFORMATION
  Report Type: Spontaneous
  Country: US (occurrence: US)
  Receive Date: 20190807
  Receipt Date: 20190807
  Transmission Date: 20191004
  Serious: Yes (Other)
  Sender: FDA-Public Use
  Company Number: US-ALVOGEN-2019-ALVOGEN-100010

PATIENT
  Age: 71 Year
  Sex: Female
  Weight: 57 kg

DRUGS (1)
  1. CLINDAMYCIN. [Suspect]
     Active Substance: CLINDAMYCIN
     Indication: KNEE ARTHROPLASTY

REACTIONS (1)
  - Clostridium difficile infection [Unknown]
